FAERS Safety Report 6594623-1 (Version None)
Quarter: 2010Q1

REPORT INFORMATION
  Report Type: 
  Country: None (occurrence: None)
  Receive Date: 20100222
  Receipt Date: 20090625
  Transmission Date: 20100710
  Serious: No
  Sender: FDA-Public Use
  Company Number: US-BRISTOL-MYERS SQUIBB COMPANY-14679450

PATIENT

DRUGS (1)
  1. TAXOL [Suspect]

REACTIONS (1)
  - NAIL DISCOLOURATION [None]
